FAERS Safety Report 9228605 (Version 1)
Quarter: 2013Q2

REPORT INFORMATION
  Report Type: Spontaneous
  Country: AT (occurrence: AT)
  Receive Date: 20130412
  Receipt Date: 20130412
  Transmission Date: 20140414
  Serious: Yes (Hospitalization)
  Sender: FDA-Public Use
  Company Number: AT-ROCHE-1211692

PATIENT
  Sex: Male

DRUGS (12)
  1. ROACTEMRA [Suspect]
     Indication: RHEUMATOID ARTHRITIS
     Route: 065
     Dates: start: 201008, end: 201302
  2. METHOTREXATE [Suspect]
     Indication: RHEUMATOID ARTHRITIS
     Route: 065
     Dates: start: 200404, end: 201303
  3. HYDAL [Concomitant]
  4. LYRICA [Concomitant]
  5. VOLTAREN [Concomitant]
  6. SERETIDE [Concomitant]
  7. SINGULAIR [Concomitant]
  8. SULTANOL [Concomitant]
  9. TAMSUDIL [Concomitant]
  10. FORSTEO [Concomitant]
  11. CYMBALTA [Concomitant]
  12. OLEOVIT [Concomitant]

REACTIONS (2)
  - Bursitis [Not Recovered/Not Resolved]
  - Impaired healing [Not Recovered/Not Resolved]
